FAERS Safety Report 9222357 (Version 1)
Quarter: 2013Q2

REPORT INFORMATION
  Report Type: Spontaneous
  Country: ES (occurrence: ES)
  Receive Date: 20130410
  Receipt Date: 20130410
  Transmission Date: 20140414
  Serious: Yes (Death, Hospitalization)
  Sender: FDA-Public Use
  Company Number: ES-MYLANLABS-2013S1007155

PATIENT
  Age: 3 Year
  Sex: Male
  Weight: 13 kg

DRUGS (11)
  1. TRANEXAMIC ACID [Suspect]
     Indication: CARDIOPULMONARY BYPASS
     Dosage: 3 BOLUSES OF 10 MG/KG
     Route: 065
  2. HEPARIN [Suspect]
     Indication: ANTICOAGULANT THERAPY
     Dosage: 55MG; LATER RECEIVED IV 1MG/KG/MIN
     Route: 065
  3. HEPARIN [Suspect]
     Indication: ANTICOAGULANT THERAPY
     Dosage: 1 MG/KG/MIN
     Route: 041
  4. FENTANYL [Concomitant]
     Indication: ANAESTHESIA
     Route: 065
  5. SEVOFLURANE [Concomitant]
     Indication: ANAESTHESIA
     Route: 065
  6. MIDAZOLAM [Concomitant]
     Indication: ANAESTHESIA
     Route: 065
  7. CISATRACURIUM BESILATE [Concomitant]
     Indication: ANAESTHESIA
     Route: 065
  8. PROTAMINE SULFATE [Concomitant]
     Route: 065
  9. DOPAMINE [Concomitant]
     Indication: RESUSCITATION
     Dosage: HIGH DOSES
     Route: 065
  10. DOBUTAMINE [Concomitant]
     Indication: RESUSCITATION
     Dosage: HIGH DOSES
     Route: 065
  11. EPINEPHRINE [Concomitant]
     Indication: RESUSCITATION
     Dosage: HIGH DOSES
     Route: 065

REACTIONS (3)
  - Atrial thrombosis [Fatal]
  - Pulmonary embolism [Not Recovered/Not Resolved]
  - Pharyngeal haemorrhage [Unknown]
